FAERS Safety Report 20247004 (Version 1)
Quarter: 2021Q4

REPORT INFORMATION
  Report Type: Spontaneous
  Country: US (occurrence: US)
  Receive Date: 20211229
  Receipt Date: 20211229
  Transmission Date: 20220303
  Serious: Yes (Hospitalization, Other)
  Sender: FDA-Public Use
  Company Number: US-MLMSERVICE-20211209-3262999-1

PATIENT
  Age: 20 Year
  Sex: Female

DRUGS (11)
  1. CLOBAZAM [Suspect]
     Active Substance: CLOBAZAM
     Indication: Status epilepticus
     Dosage: 10 MG, BID
     Route: 065
  2. CLOBAZAM [Suspect]
     Active Substance: CLOBAZAM
     Dosage: 20 MG, BID
     Route: 065
  3. LEVETIRACETAM [Suspect]
     Active Substance: LEVETIRACETAM
     Indication: Status epilepticus
     Dosage: 1000 MG, QD (AM)
     Route: 065
  4. LEVETIRACETAM [Suspect]
     Active Substance: LEVETIRACETAM
     Dosage: 1500 MG, QD (PM)
     Route: 065
  5. LORAZEPAM [Suspect]
     Active Substance: LORAZEPAM
     Indication: Status epilepticus
     Dosage: 4 MG
     Route: 042
  6. VALPROIC ACID [Suspect]
     Active Substance: VALPROIC ACID
     Indication: Status epilepticus
     Dosage: 1000 MG, BID
     Route: 065
  7. VALPROIC ACID [Suspect]
     Active Substance: VALPROIC ACID
     Dosage: 2000 MG, BID
     Route: 065
  8. LEVOCARNITINE [Suspect]
     Active Substance: LEVOCARNITINE
     Indication: Status epilepticus
     Dosage: 600 MG, BID
     Route: 065
  9. LEVOCARNITINE [Suspect]
     Active Substance: LEVOCARNITINE
     Dosage: 660 MG, BID
     Route: 065
  10. PROPOFOL [Concomitant]
     Active Substance: PROPOFOL
     Indication: Status epilepticus
     Dosage: 100 UNK, 100 MCG/ KG/ MINUTE
     Route: 042
  11. MIDAZOLAM [Concomitant]
     Active Substance: MIDAZOLAM
     Indication: Status epilepticus
     Dosage: 30 MILLIGRAM, PER HOUR
     Route: 042

REACTIONS (1)
  - Drug ineffective [Unknown]
